FAERS Safety Report 4677126-0 (Version None)
Quarter: 2005Q2

REPORT INFORMATION
  Report Type: 
  Country: None (occurrence: None)
  Receive Date: 20050525
  Receipt Date: 20050525
  Transmission Date: 20051028
  Serious: Yes (Death)
  Sender: FDA-Public Use
  Company Number: None

PATIENT
  Age: 67 Year
  Sex: Male
  Weight: 77 kg

DRUGS (10)
  1. NEUTROSPEC [Suspect]
     Dosage: 17.5 MG,  X1, IV
     Route: 042
     Dates: start: 20050502
  2. VIT C TAB [Concomitant]
  3. ANCEF [Concomitant]
  4. CLEOCIN PHOSPHATE [Concomitant]
  5. TRANDATE [Concomitant]
  6. ZESTRIL [Concomitant]
  7. MULTI-VITAMIN [Concomitant]
  8. ZOLOFT [Concomitant]
  9. ZINC SULFATE [Concomitant]
  10. XANAX [Concomitant]

REACTIONS (1)
  - CARDIO-RESPIRATORY ARREST [None]
